FAERS Safety Report 20219924 (Version 1)
Quarter: 2021Q4

REPORT INFORMATION
  Report Type: Report from Study
  Country: CN (occurrence: CN)
  Receive Date: 20211222
  Receipt Date: 20211222
  Transmission Date: 20220304
  Serious: Yes (Disabling)
  Sender: FDA-Public Use
  Company Number: CN-BRISTOL-MYERS SQUIBB COMPANY-BMS-2021-126765

PATIENT
  Age: 70 Year
  Sex: Female

DRUGS (1)
  1. NIVOLUMAB [Suspect]
     Active Substance: NIVOLUMAB
     Indication: Non-small cell lung cancer
     Dosage: 140 MILLIGRAM, Q2WK
     Route: 041
     Dates: start: 20210907

REACTIONS (4)
  - Discomfort [Unknown]
  - Nasopharyngitis [Unknown]
  - Motion sickness [Unknown]
  - Asthenia [Unknown]
